FAERS Safety Report 10026965 (Version 8)
Quarter: 2014Q2

REPORT INFORMATION
  Report Type: Spontaneous
  Country: US (occurrence: US)
  Receive Date: 20140321
  Receipt Date: 20140618
  Transmission Date: 20141212
  Serious: Yes (Other)
  Sender: FDA-Public Use
  Company Number: US-JNJFOC-20140310405

PATIENT
  Age: 51 Year
  Sex: Female
  Weight: 82.56 kg

DRUGS (2)
  1. XARELTO [Suspect]
     Indication: PULMONARY EMBOLISM
     Route: 048
     Dates: start: 20131217
  2. XANAX [Concomitant]
     Indication: ANXIETY
     Dosage: WHEN REQUIRED
     Route: 048

REACTIONS (1)
  - Menorrhagia [Recovering/Resolving]
